FAERS Safety Report 24938184 (Version 4)
Quarter: 2025Q2

REPORT INFORMATION
  Report Type: Report from Study
  Country: BR (occurrence: BR)
  Receive Date: 20250206
  Receipt Date: 20250602
  Transmission Date: 20250717
  Serious: Yes (Hospitalization, Other)
  Sender: NOVARTIS
  Company Number: BR-002147023-NVSC2022BR226962

PATIENT
  Age: 68 Year
  Sex: Female
  Weight: 93 kg

DRUGS (18)
  1. KISQALI [Suspect]
     Active Substance: RIBOCICLIB SUCCINATE
     Indication: Breast cancer
     Route: 065
  2. KISQALI [Suspect]
     Active Substance: RIBOCICLIB SUCCINATE
     Route: 065
  3. KISQALI [Suspect]
     Active Substance: RIBOCICLIB SUCCINATE
     Route: 065
     Dates: start: 20220929
  4. KISQALI [Suspect]
     Active Substance: RIBOCICLIB SUCCINATE
     Route: 065
     Dates: start: 20220929
  5. KISQALI [Suspect]
     Active Substance: RIBOCICLIB SUCCINATE
     Dosage: 3 DOSAGE FORM, QD (TAKE 03 TABLETS 200 MG PER DAY (DAILY DOSE 600 MG) (DAYS OF TREATMENT: C12/D1- 18
     Route: 048
  6. KISQALI [Suspect]
     Active Substance: RIBOCICLIB SUCCINATE
     Dosage: 3 DOSAGE FORM, QD (3 DAILY  TABLETS,  WITH 21 RUNNING (AS  REPORTED))
     Route: 048
  7. KISQALI [Suspect]
     Active Substance: RIBOCICLIB SUCCINATE
     Route: 065
     Dates: start: 20240606
  8. KISQALI [Suspect]
     Active Substance: RIBOCICLIB SUCCINATE
     Route: 048
  9. KISQALI [Suspect]
     Active Substance: RIBOCICLIB SUCCINATE
     Route: 048
  10. KISQALI [Suspect]
     Active Substance: RIBOCICLIB SUCCINATE
     Route: 048
  11. KISQALI [Suspect]
     Active Substance: RIBOCICLIB SUCCINATE
     Dosage: 3 DOSAGE FORM, QD (3 TABLETS)
     Route: 048
     Dates: start: 20241122
  12. ANASTROZOLE [Suspect]
     Active Substance: ANASTROZOLE
     Indication: Alopecia
     Route: 065
  13. ANASTROZOLE [Suspect]
     Active Substance: ANASTROZOLE
     Indication: Prophylaxis
     Dosage: 1 DOSAGE FORM, QD (QUANTITY 30 TABLET) (DAYS OF TREATMENT: C12/D1 ? 18 AUG 2023 (TAKE ONE TABLET PER
     Route: 048
  14. LOSARTAN [Suspect]
     Active Substance: LOSARTAN
     Indication: Blood pressure abnormal
     Route: 065
  15. METAMIZOLE SODIUM [Suspect]
     Active Substance: METAMIZOLE SODIUM
     Indication: Influenza
     Route: 065
  16. HYDROCHLOROTHIAZIDE [Suspect]
     Active Substance: HYDROCHLOROTHIAZIDE
     Indication: Blood pressure abnormal
     Route: 065
  17. METAMIZOLE SODIUM [Concomitant]
     Active Substance: METAMIZOLE SODIUM
     Indication: Product used for unknown indication
     Route: 065
  18. CAFFEINE\ISOMETHEPTENE\METHIMAZOLE [Concomitant]
     Active Substance: CAFFEINE\ISOMETHEPTENE\METHIMAZOLE
     Indication: Product used for unknown indication
     Route: 065

REACTIONS (50)
  - Pulmonary oedema [Unknown]
  - COVID-19 [Unknown]
  - Pleural effusion [Unknown]
  - Arrhythmia [Recovering/Resolving]
  - Cardiac failure [Unknown]
  - Hypersensitivity [Recovered/Resolved]
  - Sluggishness [Recovered/Resolved]
  - Pollakiuria [Unknown]
  - Pain [Recovered/Resolved]
  - Abdominal discomfort [Recovered/Resolved]
  - Gastrooesophageal reflux disease [Unknown]
  - Abdominal distension [Recovering/Resolving]
  - Skin exfoliation [Unknown]
  - Illness [Unknown]
  - Dyspepsia [Recovering/Resolving]
  - Urinary tract infection [Recovered/Resolved]
  - Dry skin [Recovered/Resolved]
  - Abdominal pain [Unknown]
  - Alopecia [Not Recovered/Not Resolved]
  - Headache [Recovered/Resolved]
  - Asthenia [Unknown]
  - Influenza [Recovered/Resolved]
  - Hypertension [Unknown]
  - Constipation [Recovered/Resolved]
  - Migraine [Not Recovered/Not Resolved]
  - Vomiting [Unknown]
  - Influenza [Unknown]
  - Speech disorder [Unknown]
  - Osteoarthritis [Unknown]
  - Cough [Unknown]
  - Hypersensitivity [Unknown]
  - Vitiligo [Not Recovered/Not Resolved]
  - Skin disorder [Unknown]
  - Photosensitivity reaction [Not Recovered/Not Resolved]
  - Cardiomegaly [Unknown]
  - Hypotension [Recovered/Resolved]
  - Blood pressure increased [Recovered/Resolved]
  - Blood pressure abnormal [Recovered/Resolved]
  - Pigmentation disorder [Not Recovered/Not Resolved]
  - Gait disturbance [Recovering/Resolving]
  - Inappropriate schedule of product administration [Not Recovered/Not Resolved]
  - Off label use [Unknown]
  - Dengue fever [Recovering/Resolving]
  - Platelet count decreased [Unknown]
  - Oesophageal disorder [Unknown]
  - Eating disorder [Unknown]
  - Confusional state [Unknown]
  - Feeding disorder [Unknown]
  - Rash macular [Unknown]
  - Anaemia [Unknown]

NARRATIVE: CASE EVENT DATE: 20220929
